FAERS Safety Report 12014231 (Version 2)
Quarter: 2016Q2

REPORT INFORMATION
  Report Type: Other
  Country: CA (occurrence: CA)
  Receive Date: 20160205
  Receipt Date: 20160608
  Transmission Date: 20160815
  Serious: Yes (Hospitalization, Other)
  Sender: FDA-Public Use
  Company Number: CA-DUCHESNAY INC.-1047391

PATIENT
  Age: 26 Year
  Sex: Female
  Weight: 80 kg

DRUGS (18)
  1. PREDNISONE. [Suspect]
     Active Substance: PREDNISONE
     Route: 048
  2. IRON [Suspect]
     Active Substance: IRON
  3. OMEPRAZOLE. [Suspect]
     Active Substance: OMEPRAZOLE
     Route: 048
  4. ZOPICLONE [Suspect]
     Active Substance: ZOPICLONE
     Route: 048
  5. DIPHENHYDRAMINE. [Suspect]
     Active Substance: DIPHENHYDRAMINE
     Route: 048
  6. SALBUTAMOL [Suspect]
     Active Substance: ALBUTEROL
  7. ATENOLOL TABLETS BP [Suspect]
     Active Substance: ATENOLOL
  8. CELEXA [Suspect]
     Active Substance: CITALOPRAM HYDROBROMIDE
  9. IMURAN [Suspect]
     Active Substance: AZATHIOPRINE
     Route: 048
  10. TYLENOL [Suspect]
     Active Substance: ACETAMINOPHEN
  11. DIMENHYDRINATE. [Suspect]
     Active Substance: DIMENHYDRINATE
     Route: 042
  12. DICLEGIS [Suspect]
     Active Substance: DOXYLAMINE SUCCINATE\PYRIDOXINE HYDROCHLORIDE
     Indication: NAUSEA
  13. APO-SALVENT [Suspect]
     Active Substance: ALBUTEROL
  14. REMICADE [Suspect]
     Active Substance: INFLIXIMAB
     Route: 042
  15. FLOVENT [Suspect]
     Active Substance: FLUTICASONE PROPIONATE
  16. OXAZEPAM. [Suspect]
     Active Substance: OXAZEPAM
     Route: 048
  17. TORADOL [Suspect]
     Active Substance: KETOROLAC TROMETHAMINE
  18. BETADERM [Suspect]
     Active Substance: BETAMETHASONE VALERATE
     Route: 061

REACTIONS (8)
  - Nausea [Recovered/Resolved]
  - Rectal haemorrhage [Recovered/Resolved]
  - Haemoglobin decreased [Recovered/Resolved]
  - Concussion [Recovered/Resolved]
  - Depression [Recovered/Resolved]
  - Dehydration [Recovered/Resolved]
  - Abdominal pain [Recovered/Resolved]
  - Diarrhoea [Recovered/Resolved]
